FAERS Safety Report 6623469-0 (Version None)
Quarter: 2010Q1

REPORT INFORMATION
  Report Type: 
  Country: None (occurrence: None)
  Receive Date: 20100310
  Receipt Date: 20100303
  Transmission Date: 20100710
  Serious: Yes (Life-Threatening, Hospitalization)
  Sender: FDA-Public Use
  Company Number: PL-BRISTOL-MYERS SQUIBB COMPANY-14779367

PATIENT
  Age: 39 Year
  Sex: Male
  Weight: 140 kg

DRUGS (2)
  1. ABILIFY [Suspect]
     Indication: SCHIZOPHRENIA
     Route: 048
     Dates: start: 20080521, end: 20080629
  2. TISERCIN [Concomitant]
     Dates: start: 20081001

REACTIONS (1)
  - VENOUS THROMBOSIS [None]
